FAERS Safety Report 14157416 (Version 1)
Quarter: 2017Q4

REPORT INFORMATION
  Report Type: Spontaneous
  Country: CN (occurrence: CN)
  Receive Date: 20171103
  Receipt Date: 20171103
  Transmission Date: 20180321
  Serious: Yes (Hospitalization, Other)
  Sender: FDA-Public Use
  Company Number: CN-GLAXOSMITHKLINE-CN2017GSK167545

PATIENT
  Age: 29 Year
  Sex: Male

DRUGS (3)
  1. LAMOTRIGINE. [Suspect]
     Active Substance: LAMOTRIGINE
     Indication: EPILEPSY
  2. OXCARBAZEPINE. [Suspect]
     Active Substance: OXCARBAZEPINE
     Indication: EPILEPSY
  3. PREDNISOLONE. [Suspect]
     Active Substance: PREDNISOLONE
     Indication: DRUG REACTION WITH EOSINOPHILIA AND SYSTEMIC SYMPTOMS

REACTIONS (12)
  - Papule [Unknown]
  - Rash [Unknown]
  - Drug eruption [Unknown]
  - Tooth erosion [Unknown]
  - Skin hyperplasia [Unknown]
  - Drug reaction with eosinophilia and systemic symptoms [Recovered/Resolved]
  - Diabetes mellitus [Unknown]
  - Hypertension [Unknown]
  - Blood pressure increased [Unknown]
  - Epidermal necrosis [Unknown]
  - Erythema [Unknown]
  - Parakeratosis [Unknown]
